FAERS Safety Report 20010803 (Version 2)
Quarter: 2021Q4

REPORT INFORMATION
  Report Type: Report from Study
  Country: CA (occurrence: CA)
  Receive Date: 20211028
  Receipt Date: 20211103
  Transmission Date: 20220303
  Serious: Yes (Hospitalization)
  Sender: FDA-Public Use
  Company Number: CA-TEVA-2021-CA-1968890

PATIENT
  Age: 37 Year
  Sex: Female

DRUGS (7)
  1. LORAZEPAM [Suspect]
     Active Substance: LORAZEPAM
     Indication: Schizoaffective disorder depressive type
     Dosage: 3 MILLIGRAM DAILY;
     Route: 065
  2. ZOPICLONE [Suspect]
     Active Substance: ZOPICLONE
     Indication: Catatonia
     Dosage: 60 MILLIGRAM DAILY; IN THE DAYTIME FOR 28 DAYS
     Route: 048
  3. ZOPICLONE [Suspect]
     Active Substance: ZOPICLONE
     Indication: Aggression
     Dosage: 7.5 MILLIGRAM DAILY; AT BEDTIME
     Route: 065
  4. ZOPICLONE [Suspect]
     Active Substance: ZOPICLONE
     Indication: Schizoaffective disorder depressive type
  5. Respiral Consta [Concomitant]
     Indication: Schizoaffective disorder depressive type
     Dosage: 37.5 IM Q.2 WEEKLY
     Route: 030
  6. ZOLOFT [Concomitant]
     Active Substance: SERTRALINE HYDROCHLORIDE
     Indication: Schizoaffective disorder depressive type
     Dosage: 50 MILLIGRAM DAILY; AT BEDTIME
     Route: 048
  7. CLOZARIL [Concomitant]
     Active Substance: CLOZAPINE
     Indication: Schizoaffective disorder depressive type
     Dosage: 250 MILLIGRAM DAILY; AT BEDTIME
     Route: 048

REACTIONS (5)
  - Paradoxical drug reaction [Recovering/Resolving]
  - Agitation [Recovering/Resolving]
  - Aggression [Recovering/Resolving]
  - Catatonia [Recovering/Resolving]
  - Off label use [Unknown]
